FAERS Safety Report 9687874 (Version 1)
Quarter: 2013Q4

REPORT INFORMATION
  Report Type: Spontaneous
  Country: US (occurrence: US)
  Receive Date: 20131114
  Receipt Date: 20131114
  Transmission Date: 20140711
  Serious: No
  Sender: FDA-Public Use
  Company Number: US-JNJFOC-20131101096

PATIENT
  Age: 3 Decade
  Sex: Female

DRUGS (2)
  1. INVEGA [Suspect]
     Indication: HALLUCINATION, AUDITORY
     Route: 048
     Dates: end: 2013
  2. INVEGA [Suspect]
     Indication: TRISOMY 21
     Route: 048
     Dates: end: 2013

REACTIONS (2)
  - Fall [Unknown]
  - Off label use [Unknown]
